FAERS Safety Report 8439045-3 (Version None)
Quarter: 2012Q2

REPORT INFORMATION
  Report Type: 
  Country: None (occurrence: None)
  Receive Date: 20120615
  Receipt Date: 20120607
  Transmission Date: 20120825
  Serious: Yes (Hospitalization, Congenital Anomaly)
  Sender: FDA-Public Use
  Company Number: US-JNJFOC-20120410487

PATIENT
  Sex: Male

DRUGS (17)
  1. OXYCONTIN [Suspect]
     Indication: FOETAL EXPOSURE DURING PREGNANCY
     Route: 064
  2. LEUCOVORIN CALCIUM [Concomitant]
     Route: 064
  3. EFFEXOR [Suspect]
     Indication: FOETAL EXPOSURE DURING PREGNANCY
     Route: 064
  4. VICODIN [Suspect]
     Indication: FOETAL EXPOSURE DURING PREGNANCY
     Route: 064
  5. ACETAMINOPHEN [Suspect]
     Indication: FOETAL EXPOSURE DURING PREGNANCY
     Route: 064
  6. CRESTOR [Suspect]
     Indication: FOETAL EXPOSURE DURING PREGNANCY
     Route: 064
  7. OVCON-35 [Suspect]
     Indication: FOETAL EXPOSURE DURING PREGNANCY
     Route: 064
  8. NYSTATIN [Suspect]
     Indication: FOETAL EXPOSURE DURING PREGNANCY
     Route: 064
  9. SELECTIVE SEROTONIN REUPTAKE INHIBITOR [Suspect]
     Indication: FOETAL EXPOSURE DURING PREGNANCY
     Route: 064
  10. VITAMIN AND MINERAL PRENATAL SUPPLEMENT W/ FOLIC ACID CAP [Concomitant]
     Route: 064
  11. FISH OIL [Concomitant]
     Route: 064
  12. TOPAMAX [Suspect]
     Indication: FOETAL EXPOSURE DURING PREGNANCY
     Route: 064
  13. SOMA [Suspect]
     Indication: FOETAL EXPOSURE DURING PREGNANCY
     Route: 064
  14. FELDENE [Suspect]
     Indication: FOETAL EXPOSURE DURING PREGNANCY
     Route: 064
  15. ACETAMINOPHEN [Suspect]
     Route: 064
  16. ULTRAM [Suspect]
     Indication: FOETAL EXPOSURE DURING PREGNANCY
     Route: 064
  17. OXYCODONE/ACETAMINOPHEN [Suspect]
     Indication: FOETAL EXPOSURE DURING PREGNANCY
     Route: 064

REACTIONS (14)
  - TORTICOLLIS [None]
  - FEEDING DISORDER [None]
  - LACRIMAL DISORDER [None]
  - PLAGIOCEPHALY [None]
  - CEREBRAL PALSY [None]
  - HYDROCELE [None]
  - CLEFT LIP AND PALATE [None]
  - HYPERMETROPIA [None]
  - DEVELOPMENTAL DELAY [None]
  - EAR INFECTION [None]
  - CRANIOSYNOSTOSIS [None]
  - DUANE'S SYNDROME [None]
  - DACRYOSTENOSIS CONGENITAL [None]
  - MATERNAL DRUGS AFFECTING FOETUS [None]
